FAERS Safety Report 9961329 (Version 1)
Quarter: 2014Q1

REPORT INFORMATION
  Report Type: Spontaneous
  Country: BR (occurrence: BR)
  Receive Date: 20140305
  Receipt Date: 20140305
  Transmission Date: 20141002
  Serious: Yes (Hospitalization)
  Sender: FDA-Public Use
  Company Number: BR-ASTRAZENECA-2014SE13168

PATIENT
  Age: 64 Year
  Sex: Female
  Weight: 63.6 kg

DRUGS (3)
  1. PLENANCE (ROSUVASTATIN) [Suspect]
     Indication: BLOOD CHOLESTEROL INCREASED
     Dosage: DAILY
     Route: 048
     Dates: start: 2012
  2. SELOZOK [Suspect]
     Indication: MYOCARDIAL INFARCTION
     Dosage: DAILY
     Route: 048
     Dates: start: 201308
  3. LOSARTAN POTASSIUM [Concomitant]
     Indication: HYPERTENSION
     Dosage: DAILY
     Route: 048
     Dates: start: 201308

REACTIONS (2)
  - Myocardial infarction [Recovered/Resolved]
  - Skin exfoliation [Not Recovered/Not Resolved]
